FAERS Safety Report 7385295-7 (Version None)
Quarter: 2011Q1

REPORT INFORMATION
  Report Type: 
  Country: None (occurrence: None)
  Receive Date: 20110330
  Receipt Date: 20100520
  Transmission Date: 20110831
  Serious: No
  Sender: FDA-Public Use
  Company Number: US-MYLANLABS-2010S1007914

PATIENT
  Age: 69 Year
  Sex: Male

DRUGS (9)
  1. AMLODIPINE [Concomitant]
     Indication: BLOOD PRESSURE INCREASED
  2. CLOPIDOGREL [Concomitant]
  3. METOPROLOL TARTRATE [Concomitant]
     Indication: BLOOD PRESSURE INCREASED
  4. TAMSULOSIN HCL [Concomitant]
     Indication: BENIGN PROSTATIC HYPERPLASIA
  5. FINASTERIDE [Concomitant]
     Indication: BENIGN PROSTATIC HYPERPLASIA
  6. EMSAM [Suspect]
     Indication: DEPRESSION
     Route: 062
     Dates: start: 20100228, end: 20100428
  7. LISINOPRIL [Concomitant]
     Indication: BLOOD PRESSURE INCREASED
  8. PRAVASTATIN [Concomitant]
     Indication: BLOOD CHOLESTEROL INCREASED
  9. ZIPRASIDONE HCL [Concomitant]
     Indication: DEPRESSION

REACTIONS (5)
  - APPLICATION SITE ERYTHEMA [None]
  - APPLICATION SITE IRRITATION [None]
  - APPLICATION SITE PAIN [None]
  - APPLICATION SITE URTICARIA [None]
  - FEELING COLD [None]
